FAERS Safety Report 8913107 (Version 1)
Quarter: 2012Q4

REPORT INFORMATION
  Report Type: 
  Country: FR (occurrence: FR)
  Receive Date: 20121116
  Receipt Date: 20121116
  Transmission Date: 20130627
  Serious: Yes (Hospitalization)
  Sender: FDA-Public Use
  Company Number: FR-VERTEX PHARMACEUTICAL INC.-2012-024738

PATIENT
  Age: 66 Year
  Sex: Male

DRUGS (7)
  1. INCIVO [Suspect]
     Indication: PRODUCT USED FOR UNKNOWN INDICATION
     Dosage: Dosage Form: Tablet
     Route: 048
     Dates: start: 20120522, end: 20120716
  2. PEGASYS [Concomitant]
     Dosage: Dosage Form: Injection
     Route: 065
     Dates: start: 201202
  3. PEGASYS [Concomitant]
     Dosage: Dosage Form: Injection
     Route: 065
     Dates: start: 201206
  4. NEORECORMON [Concomitant]
     Route: 065
     Dates: start: 20120522
  5. REBETOL [Concomitant]
     Dosage: 1400 mg, qd
     Route: 065
     Dates: start: 20120522
  6. REBETOL [Concomitant]
     Dosage: 1200 mg, qd
     Route: 065
     Dates: start: 20120828
  7. REBETOL [Concomitant]
     Dosage: 800 mg, qd
     Route: 065
     Dates: start: 20120913

REACTIONS (1)
  - Toxic skin eruption [Recovered/Resolved]
